FAERS Safety Report 4817990-5 (Version None)
Quarter: 2005Q4

REPORT INFORMATION
  Report Type: 
  Country: None (occurrence: None)
  Receive Date: 20051102
  Receipt Date: 20051024
  Transmission Date: 20060501
  Serious: Yes (Hospitalization)
  Sender: FDA-Public Use
  Company Number: FR-BRISTOL-MYERS SQUIBB COMPANY-13158118

PATIENT
  Age: 81 Year
  Sex: Female

DRUGS (6)
  1. APROVEL TABS 150 MG [Suspect]
     Route: 048
  2. LERCAN [Suspect]
  3. PHYSIOTENS [Suspect]
  4. VASTAREL [Concomitant]
  5. FLECAINIDE ACETATE [Concomitant]
  6. DIASTABOL [Concomitant]

REACTIONS (4)
  - CONFUSIONAL STATE [None]
  - FALL [None]
  - HYPOTENSION [None]
  - MOVEMENT DISORDER [None]
